FAERS Safety Report 13512529 (Version 1)
Quarter: 2017Q2

REPORT INFORMATION
  Report Type: Report from Study
  Country: CN (occurrence: CN)
  Receive Date: 20170504
  Receipt Date: 20170504
  Transmission Date: 20170830
  Serious: Yes (Death, Hospitalization, Other)
  Sender: FDA-Public Use
  Company Number: CN-ROCHE-1652727

PATIENT
  Age: 62 Year
  Sex: Male
  Weight: 53 kg

DRUGS (1)
  1. AVASTIN [Suspect]
     Active Substance: BEVACIZUMAB
     Indication: COLORECTAL CANCER METASTATIC
     Route: 041
     Dates: start: 20150529, end: 20170216

REACTIONS (17)
  - Respiratory failure [Fatal]
  - Pleural thickening [Unknown]
  - Dyspnoea [Recovering/Resolving]
  - Hepatic function abnormal [Unknown]
  - Lung infection [Recovering/Resolving]
  - Drug ineffective [Unknown]
  - Viral upper respiratory tract infection [Unknown]
  - Lung infection [Fatal]
  - Lung infection [Unknown]
  - Headache [Recovering/Resolving]
  - Cough [Unknown]
  - Mouth ulceration [Recovering/Resolving]
  - Pyrexia [Recovering/Resolving]
  - Tooth extraction [Unknown]
  - Abdominal infection [Unknown]
  - Metastases to lung [Unknown]
  - Pneumonia [Unknown]

NARRATIVE: CASE EVENT DATE: 20160502
